FAERS Safety Report 4465814-0 (Version None)
Quarter: 2004Q3

REPORT INFORMATION
  Report Type: 
  Country: None (occurrence: None)
  Receive Date: 20040929
  Receipt Date: 20040929
  Transmission Date: 20050211
  Serious: Yes (Other)
  Sender: FDA-Public Use
  Company Number: None

PATIENT
  Age: 78 Year
  Sex: Male

DRUGS (6)
  1. EULEXIN [Suspect]
     Indication: PROSTATE CANCER
     Dosage: 125 MG 2 Q8HR
     Dates: start: 20040801
  2. PROSCAR [Suspect]
     Indication: PROSTATE CANCER
     Dosage: 5 MG 1 Q DAY
     Dates: start: 20040801
  3. IBUPROFEN [Concomitant]
  4. RANITIDINE [Concomitant]
  5. MULTIVITAMIN [Concomitant]
  6. VERAPAMIL [Concomitant]

REACTIONS (1)
  - COLON CANCER STAGE IV [None]
